FAERS Safety Report 24964627 (Version 2)
Quarter: 2025Q2

REPORT INFORMATION
  Report Type: Spontaneous
  Country: CA (occurrence: CA)
  Receive Date: 20250213
  Receipt Date: 20250411
  Transmission Date: 20250717
  Serious: Yes (Death)
  Sender: PHARMACOSMOS
  Company Number: CA-NEBO-687130

PATIENT
  Sex: Male
  Weight: 78 kg

DRUGS (1)
  1. MONOFERRIC [Suspect]
     Active Substance: FERRIC DERISOMALTOSE
     Indication: Product used for unknown indication
     Dates: start: 20240626, end: 20240626

REACTIONS (1)
  - Sudden death [Fatal]

NARRATIVE: CASE EVENT DATE: 20251221
